FAERS Safety Report 8020133-0 (Version None)
Quarter: 2012Q1

REPORT INFORMATION
  Report Type: 
  Country: None (occurrence: None)
  Receive Date: 20120103
  Receipt Date: 20111227
  Transmission Date: 20120608
  Serious: Yes (Hospitalization)
  Sender: FDA-Public Use
  Company Number: US-BAYER-2011-031419

PATIENT
  Age: 42 Year
  Sex: Female

DRUGS (13)
  1. HYDROCODONE [Concomitant]
     Dosage: UNK UNK, PRN
     Route: 048
  2. PREVACID [Concomitant]
     Dosage: 30 MG, BID
     Route: 048
  3. REMERON [Concomitant]
     Dosage: 100 MG, TID
     Route: 048
  4. GLUCOMANNAN [Concomitant]
  5. ELMIRON [Concomitant]
     Dosage: UNK UNK, BID
  6. YAZ [Suspect]
     Indication: CONTRACEPTION
     Dosage: UNK
     Route: 048
     Dates: start: 20071001, end: 20090201
  7. BIOTINE [Concomitant]
     Dosage: 1000 MG, UNK
  8. CALCIUM ACETATE [Concomitant]
  9. VISTARIL [Concomitant]
     Dosage: 25 MG, HS
     Route: 048
  10. YASMIN [Suspect]
     Indication: CONTRACEPTION
     Dosage: UNK
     Route: 048
     Dates: start: 20061001, end: 20071001
  11. NEURONTIN [Concomitant]
     Dosage: 800 MG, PRN
     Route: 048
  12. AMBIEN [Concomitant]
     Dosage: 10 MG, HS
     Route: 048
  13. CHITOSAN [CHITOSAN] [Concomitant]
     Dosage: 1000 MG, UNK

REACTIONS (1)
  - DEEP VEIN THROMBOSIS [None]
